FAERS Safety Report 5373952-3 (Version None)
Quarter: 2007Q2

REPORT INFORMATION
  Report Type: 
  Country: None (occurrence: None)
  Receive Date: 20070627
  Receipt Date: 20070615
  Transmission Date: 20071010
  Serious: Yes (Death)
  Sender: FDA-Public Use
  Company Number: GXBR2007US01214

PATIENT
  Age: 44 Year
  Sex: Male

DRUGS (1)
  1. ANECTINE [Suspect]
     Indication: INTUBATION
     Dosage: INTRAVENOUS
     Route: 042
     Dates: start: 20070514, end: 20070517

REACTIONS (4)
  - ANOXIA [None]
  - BRAIN DEATH [None]
  - CARDIAC ARREST [None]
  - VENTRICULAR TACHYCARDIA [None]
